FAERS Safety Report 10452705 (Version 2)
Quarter: 2014Q3

REPORT INFORMATION
  Report Type: Spontaneous
  Country: US (occurrence: US)
  Receive Date: 20140915
  Receipt Date: 20140930
  Transmission Date: 20150326
  Serious: No
  Sender: FDA-Public Use
  Company Number: US-009507513-1408USA015464

PATIENT
  Age: 33 Year
  Sex: Female
  Weight: 121.1 kg

DRUGS (1)
  1. NEXPLANON [Suspect]
     Active Substance: ETONOGESTREL
     Indication: CONTRACEPTION
     Dosage: 1 UNIT/ 3 YEARS
     Route: 059
     Dates: start: 20140815

REACTIONS (5)
  - Wrong technique in drug usage process [Unknown]
  - Device dislocation [Recovered/Resolved]
  - Device dislocation [Unknown]
  - Arthralgia [Unknown]
  - Arthralgia [Recovered/Resolved]

NARRATIVE: CASE EVENT DATE: 201408
